FAERS Safety Report 6368606-0 (Version None)
Quarter: 2009Q3

REPORT INFORMATION
  Report Type: 
  Country: None (occurrence: None)
  Receive Date: 20090922
  Receipt Date: 20090916
  Transmission Date: 20100115
  Serious: Yes (Other)
  Sender: FDA-Public Use
  Company Number: NL-JNJFOC-20090902921

PATIENT
  Age: 8 Year
  Sex: Male
  Weight: 34.5 kg

DRUGS (1)
  1. CONCERTA [Suspect]
     Indication: DISTURBANCE IN ATTENTION

REACTIONS (3)
  - DECREASED APPETITE [None]
  - SOMNOLENCE [None]
  - WEIGHT INCREASED [None]
